FAERS Safety Report 16065744 (Version 1)
Quarter: 2019Q1

REPORT INFORMATION
  Report Type: Spontaneous
  Country: ES (occurrence: ES)
  Receive Date: 20190313
  Receipt Date: 20190313
  Transmission Date: 20190418
  Serious: Yes (Hospitalization)
  Sender: FDA-Public Use
  Company Number: ES-BIODELIVERY SCIENCES INTERNATIONAL-2019BDSI0184

PATIENT
  Age: 70 Year
  Sex: Male
  Weight: 81 kg

DRUGS (8)
  1. FENTANYL. [Suspect]
     Active Substance: FENTANYL
     Indication: MUSCULOSKELETAL CHEST PAIN
     Route: 062
     Dates: start: 20170423, end: 20170425
  2. FENTANYL. [Suspect]
     Active Substance: FENTANYL
     Route: 062
     Dates: start: 20170408, end: 20170422
  3. MORPHINE [Concomitant]
     Active Substance: MORPHINE
     Indication: PRODUCT USED FOR UNKNOWN INDICATION
  4. FENTANYL. [Suspect]
     Active Substance: FENTANYL
     Route: 062
     Dates: start: 20170407, end: 20170407
  5. PARACETAMOL [Concomitant]
     Active Substance: ACETAMINOPHEN
     Indication: PRODUCT USED FOR UNKNOWN INDICATION
  6. FENTANYL CITRATE. [Suspect]
     Active Substance: FENTANYL CITRATE
     Indication: MUSCULOSKELETAL CHEST PAIN
     Route: 048
     Dates: start: 20170327, end: 20170327
  7. FENTANYL. [Suspect]
     Active Substance: FENTANYL
     Route: 062
     Dates: start: 20170404, end: 20170406
  8. FENTANYL. [Suspect]
     Active Substance: FENTANYL
     Route: 062
     Dates: start: 20170330, end: 20170403

REACTIONS (1)
  - Toxicity to various agents [Recovered/Resolved]

NARRATIVE: CASE EVENT DATE: 20170425
